FAERS Safety Report 5447003-6 (Version None)
Quarter: 2007Q3

REPORT INFORMATION
  Report Type: 
  Country: None (occurrence: None)
  Receive Date: 20070810
  Receipt Date: 20060830
  Transmission Date: 20080115
  Serious: Yes (Other)
  Sender: FDA-Public Use
  Company Number: A03200605429

PATIENT
  Age: 67 Year
  Sex: Female

DRUGS (4)
  1. UROXATRAL [Suspect]
     Indication: URINARY TRACT DISORDER
     Dosage: ORAL
     Route: 048
     Dates: start: 20060829, end: 20060830
  2. SERTRALINE HYDROCHLORIDE [Concomitant]
  3. RALOXIFENE HYDROCHLORIDE [Concomitant]
  4. DIAZEPAM [Concomitant]

REACTIONS (3)
  - DIZZINESS [None]
  - HYPOTENSION [None]
  - URINARY RETENTION [None]
